FAERS Safety Report 6975102-6 (Version None)
Quarter: 2010Q3

REPORT INFORMATION
  Report Type: 
  Country: None (occurrence: None)
  Receive Date: 20100910
  Receipt Date: 20090129
  Transmission Date: 20110219
  Serious: No
  Sender: FDA-Public Use
  Company Number: US-WYE-H07965209

PATIENT
  Sex: Female
  Weight: 79.45 kg

DRUGS (8)
  1. PRISTIQ [Suspect]
     Indication: DEPRESSION
     Route: 048
     Dates: start: 20090101, end: 20090127
  2. PRISTIQ [Suspect]
     Indication: ANXIETY
  3. PHENTERMINE [Concomitant]
  4. AMBIEN [Concomitant]
  5. ELMIRON [Concomitant]
  6. ELAVIL [Concomitant]
     Dosage: UNKNOWN
     Dates: end: 20090101
  7. MAXALT [Concomitant]
  8. TYLENOL [Concomitant]

REACTIONS (10)
  - AURA [None]
  - CONDITION AGGRAVATED [None]
  - DIZZINESS [None]
  - FEELING ABNORMAL [None]
  - FEELING COLD [None]
  - FEELING DRUNK [None]
  - HYPERHIDROSIS [None]
  - MIGRAINE [None]
  - NAUSEA [None]
  - TACHYCARDIA [None]
